FAERS Safety Report 24217303 (Version 1)
Quarter: 2024Q3

REPORT INFORMATION
  Report Type: Spontaneous
  Country: US (occurrence: None)
  Receive Date: 20240815
  Receipt Date: 20240815
  Transmission Date: 20241017
  Serious: Yes (Other)
  Sender: Public
  Company Number: None

PATIENT
  Sex: Male
  Weight: 60.75 kg

DRUGS (2)
  1. HYQVIA [Suspect]
     Active Substance: HUMAN IMMUNOGLOBULIN G\HYALURONIDASE (HUMAN RECOMBINANT)
     Indication: Hypogammaglobulinaemia
     Dosage: OTHER QUANTITY : 1 VIAL;?OTHER FREQUENCY : EVERY 4 WEEKS;?
     Route: 058
  2. HYQVIA [Suspect]
     Active Substance: HUMAN IMMUNOGLOBULIN G\HYALURONIDASE (HUMAN RECOMBINANT)
     Dosage: OTHER QUANTITY : 1 VIAL;?OTHER FREQUENCY : EVERY 4 WEEKS;?
     Route: 058

REACTIONS (6)
  - Penile swelling [None]
  - Testicular swelling [None]
  - Scrotal swelling [None]
  - Infusion related reaction [None]
  - Pollakiuria [None]
  - Gait disturbance [None]
